FAERS Safety Report 16703521 (Version 2)
Quarter: 2020Q1

REPORT INFORMATION
  Report Type: Spontaneous
  Country: DE (occurrence: DE)
  Receive Date: 20190814
  Receipt Date: 20200127
  Transmission Date: 20200409
  Serious: Yes (Hospitalization)
  Sender: FDA-Public Use
  Company Number: PHHY2019DE187829

PATIENT
  Age: 72 Year
  Sex: Male
  Weight: 90 kg

DRUGS (3)
  1. PEMETREXED DISODIUM [Suspect]
     Active Substance: PEMETREXED DISODIUM
     Indication: NON-SMALL CELL LUNG CANCER
     Dosage: 800 MG, QD
     Route: 065
     Dates: start: 20190423, end: 20190529
  2. CARBOPLATIN. [Suspect]
     Active Substance: CARBOPLATIN
     Indication: NON-SMALL CELL LUNG CANCER
     Dosage: 570 MG, QD
     Route: 065
     Dates: start: 20190529, end: 20190529
  3. PEMBROLIZUMAB. [Suspect]
     Active Substance: PEMBROLIZUMAB
     Indication: NON-SMALL CELL LUNG CANCER
     Dosage: 200 MG, QD (FREQUENCY REPORTED AS DAILY)
     Route: 065
     Dates: start: 20190320, end: 20190529

REACTIONS (3)
  - Immune-mediated adverse reaction [Unknown]
  - Demyelinating polyneuropathy [Unknown]
  - Endocarditis [Unknown]

NARRATIVE: CASE EVENT DATE: 20190718
